FAERS Safety Report 10256232 (Version 1)
Quarter: 2014Q2

REPORT INFORMATION
  Report Type: Report from Study
  Country: BR (occurrence: BR)
  Receive Date: 20140624
  Receipt Date: 20140624
  Transmission Date: 20141212
  Serious: Yes (Other)
  Sender: FDA-Public Use
  Company Number: BR-ABBVIE-14P-020-1249034-00

PATIENT
  Sex: Female
  Weight: 60 kg

DRUGS (8)
  1. HUMIRA [Suspect]
     Indication: RHEUMATOID ARTHRITIS
     Route: 058
     Dates: start: 2010
  2. SPIRONOLACTONE [Concomitant]
     Indication: HYPERTENSION
     Dosage: IN THE MORNING
     Route: 048
     Dates: start: 2009
  3. FUROSEMIDE [Concomitant]
     Indication: HYPERTENSION
     Dosage: IN THE MORNING
     Route: 048
     Dates: start: 2009
  4. JANUMET [Concomitant]
     Indication: PRODUCT USED FOR UNKNOWN INDICATION
     Dosage: IN THE AFTERNOON
     Route: 048
     Dates: start: 2009
  5. EMAMA [Concomitant]
     Indication: PRODUCT USED FOR UNKNOWN INDICATION
     Dosage: IN THE AFTERNOON
     Route: 048
     Dates: start: 2009
  6. AZUKON [Concomitant]
     Indication: PRODUCT USED FOR UNKNOWN INDICATION
     Dosage: IN THE AFTERNOON
     Route: 048
     Dates: start: 2009
  7. INSULIN [Concomitant]
     Indication: DIABETES MELLITUS
     Dosage: IN THE MORNING
     Route: 030
     Dates: start: 201404
  8. LOSARTAN [Concomitant]
     Indication: HYPERTENSION
     Route: 048
     Dates: start: 201312

REACTIONS (1)
  - Cataract diabetic [Recovered/Resolved]
